FAERS Safety Report 18099368 (Version 2)
Quarter: 2021Q2

REPORT INFORMATION
  Report Type: Spontaneous
  Country: US (occurrence: US)
  Receive Date: 20200731
  Receipt Date: 20210622
  Transmission Date: 20210717
  Serious: Yes (Other)
  Sender: FDA-Public Use
  Company Number: US-ASTRAZENECA-2020SE94649

PATIENT
  Age: 23306 Day
  Sex: Male
  Weight: 113.4 kg

DRUGS (48)
  1. NEXIUM [Suspect]
     Active Substance: ESOMEPRAZOLE MAGNESIUM
     Indication: GASTROOESOPHAGEAL REFLUX DISEASE
     Route: 048
     Dates: start: 1998, end: 2017
  2. BENAZEPRIL [Concomitant]
     Active Substance: BENAZEPRIL HYDROCHLORIDE
  3. ANASTROZOLE. [Concomitant]
     Active Substance: ANASTROZOLE
  4. ENOXAPARIN [Concomitant]
     Active Substance: ENOXAPARIN
  5. ALEVE [Concomitant]
     Active Substance: NAPROXEN SODIUM
     Indication: PAIN
  6. ZANTAC [Concomitant]
     Active Substance: RANITIDINE HYDROCHLORIDE
  7. TRESIBA [Concomitant]
     Active Substance: INSULIN DEGLUDEC
  8. POTASSIUM CHLORIDE. [Concomitant]
     Active Substance: POTASSIUM CHLORIDE
  9. SODIUM CHLORIDE. [Concomitant]
     Active Substance: SODIUM CHLORIDE
  10. ASPIRIN. [Concomitant]
     Active Substance: ASPIRIN
  11. HYDRALAZINE [Concomitant]
     Active Substance: HYDRALAZINE HYDROCHLORIDE
  12. NEXIUM 24HR [Suspect]
     Active Substance: ESOMEPRAZOLE MAGNESIUM
     Indication: GASTROOESOPHAGEAL REFLUX DISEASE
     Route: 048
     Dates: start: 2019
  13. VITAMIN D [Concomitant]
     Active Substance: VITAMIN D NOS
     Indication: VITAMIN D DEFICIENCY
  14. TESTOSTERONE. [Concomitant]
     Active Substance: TESTOSTERONE
  15. MULTIVITAMINS [Concomitant]
     Active Substance: VITAMINS
  16. MAGNESIUM OXIDE. [Concomitant]
     Active Substance: MAGNESIUM OXIDE
  17. NEXIUM [Suspect]
     Active Substance: ESOMEPRAZOLE MAGNESIUM
     Indication: GASTROOESOPHAGEAL REFLUX DISEASE
     Route: 048
     Dates: start: 200102, end: 201512
  18. GLUTAMINE [Concomitant]
     Active Substance: GLUTAMINE
     Indication: PHYSICAL FITNESS TRAINING
  19. LEVEMIR [Concomitant]
     Active Substance: INSULIN DETEMIR
  20. TOUJEO [Concomitant]
     Active Substance: INSULIN GLARGINE
  21. METHYL B [Concomitant]
  22. INSULIN [Concomitant]
     Active Substance: INSULIN NOS
  23. MULTIHANCE [Concomitant]
     Active Substance: GADOBENATE DIMEGLUMINE
  24. NEXIUM [Suspect]
     Active Substance: ESOMEPRAZOLE MAGNESIUM
     Indication: GASTROOESOPHAGEAL REFLUX DISEASE
     Dosage: GENERIC
     Route: 065
     Dates: start: 20170620, end: 20180114
  25. OLMESARTAN [Concomitant]
     Active Substance: OLMESARTAN
     Indication: CEREBROVASCULAR ACCIDENT
  26. TUMS [Concomitant]
     Active Substance: CALCIUM CARBONATE
  27. LIDOCAINE. [Concomitant]
     Active Substance: LIDOCAINE
  28. CIALIS [Concomitant]
     Active Substance: TADALAFIL
  29. DILAUDID [Concomitant]
     Active Substance: HYDROMORPHONE HYDROCHLORIDE
  30. ROLAIDS [Concomitant]
     Active Substance: CALCIUM CARBONATE\MAGNESIUM HYDROXIDE
  31. TRIAMCINOLONE ACETONIDE. [Concomitant]
     Active Substance: TRIAMCINOLONE ACETONIDE
  32. ANDROSTENEDIONE/PREGNENOLONE [Concomitant]
  33. NOVOLOG [Concomitant]
     Active Substance: INSULIN ASPART
  34. LORATADINE. [Concomitant]
     Active Substance: LORATADINE
  35. FENOFIBRATE. [Concomitant]
     Active Substance: FENOFIBRATE
  36. VITRUM [Concomitant]
  37. FLEXERIL [Concomitant]
     Active Substance: CYCLOBENZAPRINE HYDROCHLORIDE
  38. OXYCODONE?ACETAMINOPHEN [Concomitant]
     Active Substance: ACETAMINOPHEN\OXYCODONE HYDROCHLORIDE
  39. NEXIUM [Suspect]
     Active Substance: ESOMEPRAZOLE MAGNESIUM
     Indication: GASTROOESOPHAGEAL REFLUX DISEASE
     Route: 048
     Dates: start: 1998, end: 2017
  40. AMLODIPINE [Concomitant]
     Active Substance: AMLODIPINE BESYLATE
     Indication: HYPERTENSION
  41. CLOPIDOGREL [Concomitant]
     Active Substance: CLOPIDOGREL BISULFATE
     Indication: THROMBOSIS
  42. VITAMIN B [Concomitant]
     Active Substance: VITAMIN B
     Indication: VITAMIN B COMPLEX DEFICIENCY
  43. FLUTICASONE. [Concomitant]
     Active Substance: FLUTICASONE
  44. BYDUREON [Concomitant]
     Active Substance: EXENATIDE
  45. TOBRAMYCIN. [Concomitant]
     Active Substance: TOBRAMYCIN
  46. PROGESTERONE. [Concomitant]
     Active Substance: PROGESTERONE
  47. ALBUTEROL. [Concomitant]
     Active Substance: ALBUTEROL
  48. CHOLECALCIFEROL [Concomitant]
     Active Substance: CHOLECALCIFEROL

REACTIONS (4)
  - Gastrooesophageal reflux disease [Not Recovered/Not Resolved]
  - Acute kidney injury [Not Recovered/Not Resolved]
  - Chronic kidney disease [Not Recovered/Not Resolved]
  - Renal failure [Unknown]

NARRATIVE: CASE EVENT DATE: 20160111
